FAERS Safety Report 6922489-6 (Version None)
Quarter: 2010Q3

REPORT INFORMATION
  Report Type: 
  Country: None (occurrence: None)
  Receive Date: 20100813
  Receipt Date: 20100802
  Transmission Date: 20110219
  Serious: No
  Sender: FDA-Public Use
  Company Number: US-B.I. PHARMACEUTICALS,INC./RIDGEFIELD-2010-BP-08802BP

PATIENT
  Age: 54 Year
  Sex: Female

DRUGS (1)
  1. AGGRENOX [Suspect]
     Indication: CEREBROVASCULAR ACCIDENT PROPHYLAXIS
     Dosage: 25MG/200MG
     Route: 048
     Dates: start: 20080801

REACTIONS (1)
  - TONSILLAR HYPERTROPHY [None]
